FAERS Safety Report 17012054 (Version 1)
Quarter: 2019Q4

REPORT INFORMATION
  Report Type: Spontaneous
  Country: US (occurrence: US)
  Receive Date: 20191108
  Receipt Date: 20191108
  Transmission Date: 20200122
  Serious: No
  Sender: FDA-Public Use
  Company Number: US-OTSUKA-2019_004095

PATIENT
  Age: 20 Year
  Sex: Female

DRUGS (1)
  1. NUEDEXTA [Suspect]
     Active Substance: DEXTROMETHORPHAN HYDROBROMIDE\QUINIDINE SULFATE
     Indication: HEADACHE
     Dosage: 1 DF, QD
     Route: 065
     Dates: start: 20190123, end: 20190203

REACTIONS (9)
  - Chest pain [Unknown]
  - Product use in unapproved indication [Unknown]
  - Affect lability [Not Recovered/Not Resolved]
  - Product use issue [Unknown]
  - Therapy cessation [Unknown]
  - Anxiety [Not Recovered/Not Resolved]
  - Tachycardia [Unknown]
  - Anger [Not Recovered/Not Resolved]
  - Depression [Not Recovered/Not Resolved]

NARRATIVE: CASE EVENT DATE: 20190123
